FAERS Safety Report 24176837 (Version 1)
Quarter: 2024Q3

REPORT INFORMATION
  Report Type: Report from Study
  Country: TW (occurrence: None)
  Receive Date: 20240806
  Receipt Date: 20240806
  Transmission Date: 20241016
  Serious: Yes (Hospitalization)
  Sender: ASTRAZENECA
  Company Number: 2022A018133

PATIENT
  Age: 77 Year
  Sex: Female

DRUGS (1)
  1. IMFINZI [Suspect]
     Active Substance: DURVALUMAB
     Route: 042
     Dates: start: 20211129

REACTIONS (9)
  - Urinary tract infection [Unknown]
  - Red blood cell count decreased [Unknown]
  - Hypoaesthesia [Unknown]
  - Diarrhoea [Unknown]
  - Dyspnoea [Unknown]
  - Hypokalaemia [Unknown]
  - Tachycardia [Unknown]
  - Decreased appetite [Unknown]
  - Dysphagia [Unknown]

NARRATIVE: CASE EVENT DATE: 20220101
